FAERS Safety Report 7208613-9 (Version None)
Quarter: 2011Q1

REPORT INFORMATION
  Report Type: 
  Country: None (occurrence: None)
  Receive Date: 20110104
  Receipt Date: 20101222
  Transmission Date: 20110831
  Serious: Yes (Hospitalization, Other)
  Sender: FDA-Public Use
  Company Number: JP-ROCHE-702785

PATIENT
  Sex: Male
  Weight: 95 kg

DRUGS (19)
  1. IRINOTECAN HYDROCHLORIDE [Suspect]
     Dosage: DISCONTINUED
     Route: 041
     Dates: start: 20100412, end: 20100426
  2. CALCIUM LEVOFOLINATE [Suspect]
     Dosage: DISCONTINUED
     Route: 041
     Dates: start: 20100412, end: 20100426
  3. BLOPRESS [Concomitant]
     Dosage: BLOPRESS(CANDESARTAN CILEXETIL)
     Route: 048
     Dates: end: 20100506
  4. DECADRON [Concomitant]
     Dosage: NOTE: 2-4GM
     Route: 048
     Dates: start: 20100315, end: 20100429
  5. METFORMIN [Concomitant]
     Dosage: NOTE: 500-750 MG, DRUG: MEDET(METFORMIN HYDROCHLORIDE)
     Route: 048
     Dates: end: 20100506
  6. DECADRON PHOSPHATE [Concomitant]
     Dosage: INTRAVENOUS (NOT OTHERWISE SPECIFIED)
     Route: 042
     Dates: start: 20100315, end: 20100426
  7. BEVACIZUMAB [Suspect]
     Indication: LARGE INTESTINE CARCINOMA
     Dosage: DISCONTINUED
     Route: 041
     Dates: start: 20100315, end: 20100315
  8. FLUOROURACIL [Suspect]
     Dosage: DISCONTINUED
     Route: 041
     Dates: start: 20100412, end: 20100401
  9. CALCIUM LEVOFOLINATE [Suspect]
     Indication: LARGE INTESTINE CARCINOMA
     Dosage: DRUG: ISOVORIN, DISCONTINUED
     Route: 041
     Dates: start: 20100315, end: 20100315
  10. FLUOROURACIL [Suspect]
     Dosage: DISCONTINUED
     Route: 040
     Dates: start: 20100412, end: 20100426
  11. RAMELTEON [Concomitant]
     Dosage: DOSE: 0.1- 0.2 G, NASEA-OD(RAMOSETRON HYDROCHLORIDE)
     Route: 048
     Dates: start: 20100315, end: 20100427
  12. FLUOROURACIL [Suspect]
     Indication: LARGE INTESTINE CARCINOMA
     Dosage: DRUG: 5-FU, DISCONTINUED
     Route: 040
     Dates: start: 20100315, end: 20100315
  13. KYTRIL [Concomitant]
     Dosage: DRUG: KYTRIL INJECTION, INTRAVENOUS (NOT OTHERWISE SPECIFIED)
     Route: 042
     Dates: start: 20100315, end: 20100426
  14. BEVACIZUMAB [Suspect]
     Dosage: DISCONTINUED
     Route: 041
     Dates: start: 20100412, end: 20100426
  15. IRINOTECAN HYDROCHLORIDE [Suspect]
     Indication: LARGE INTESTINE CARCINOMA
     Dosage: DRUG: CAMPTO(IRINOTECAN HYDROCHLORIDE),DISCONTINUED
     Route: 041
     Dates: start: 20100315, end: 20100315
  16. FLUOROURACIL [Suspect]
     Dosage: DRUG: 5-FU, DISCONTINUED.
     Route: 041
     Dates: start: 20100315, end: 20100301
  17. LEVOFLOXACIN [Suspect]
     Indication: INFECTION PROPHYLAXIS
     Dosage: DRUG:CRAVIT, DISCONTINUED
     Route: 048
     Dates: start: 20100501, end: 20100506
  18. AMARYL [Concomitant]
     Route: 048
     Dates: end: 20100506
  19. VOGLIBOSE [Concomitant]
     Route: 048
     Dates: end: 20100506

REACTIONS (18)
  - BACK PAIN [None]
  - MALAISE [None]
  - DIARRHOEA [None]
  - EPISTAXIS [None]
  - STOMATITIS [None]
  - WEIGHT DECREASED [None]
  - DUODENAL ULCER PERFORATION [None]
  - ENTEROCOLITIS [None]
  - PLATELET COUNT DECREASED [None]
  - NAUSEA [None]
  - MUSCULOSKELETAL PAIN [None]
  - SHOCK [None]
  - DUODENAL ULCER HAEMORRHAGE [None]
  - DECREASED APPETITE [None]
  - PSOAS ABSCESS [None]
  - PYREXIA [None]
  - PROTEIN URINE [None]
  - ARTHRALGIA [None]
